FAERS Safety Report 7897929-9 (Version None)
Quarter: 2011Q4

REPORT INFORMATION
  Report Type: 
  Country: None (occurrence: None)
  Receive Date: 20111103
  Receipt Date: 20111024
  Transmission Date: 20120403
  Serious: Yes (Hospitalization, Other)
  Sender: FDA-Public Use
  Company Number: 1000024522

PATIENT
  Age: 86 Year
  Sex: Male
  Weight: 70 kg

DRUGS (1)
  1. MEMANTINE HYDROCHLORIDE [Suspect]
     Dosage: (280 MG,ONCE),ORAL
     Route: 048
     Dates: start: 20111002, end: 20111002

REACTIONS (6)
  - ENCOPRESIS [None]
  - SOMNOLENCE [None]
  - INTENTIONAL OVERDOSE [None]
  - GASTROINTESTINAL SOUNDS ABNORMAL [None]
  - SUICIDE ATTEMPT [None]
  - ENURESIS [None]
